FAERS Safety Report 8897799 (Version 1)
Quarter: 2012Q4

REPORT INFORMATION
  Report Type: 
  Country: US (occurrence: US)
  Receive Date: 20121108
  Receipt Date: 20121108
  Transmission Date: 20130627
  Serious: No
  Sender: FDA-Public Use
  Company Number: US-AMGEN-USASP2012024958

PATIENT
  Sex: Female

DRUGS (4)
  1. ENBREL [Suspect]
     Indication: RHEUMATOID ARTHRITIS
     Dosage: 50 mg, UNK
  2. HYDROXYCHLOROQUINE [Concomitant]
     Dosage: UNK UNK, qd
  3. METHOTREXATE [Concomitant]
     Dosage: UNK UNK, qwk
  4. SYNTHROID [Concomitant]
     Dosage: UNK UNK, qd

REACTIONS (2)
  - Hypersensitivity [Unknown]
  - Nasopharyngitis [Unknown]
